FAERS Safety Report 10201029 (Version 1)
Quarter: 2014Q2

REPORT INFORMATION
  Report Type: Spontaneous
  Country: CN (occurrence: CN)
  Receive Date: 20140528
  Receipt Date: 20140528
  Transmission Date: 20141212
  Serious: Yes (Other)
  Sender: FDA-Public Use
  Company Number: CN-BAYER-2014-073845

PATIENT
  Sex: Female

DRUGS (2)
  1. MIRENA [Suspect]
  2. YASMIN [Suspect]
     Indication: HAEMOSTASIS
     Dosage: UNK
     Dates: start: 20140513

REACTIONS (5)
  - Post procedural haemorrhage [None]
  - Vaginal haemorrhage [Not Recovered/Not Resolved]
  - Off label use [None]
  - Incorrect dose administered [None]
  - Medication error [None]
